FAERS Safety Report 14308634 (Version 2)
Quarter: 2018Q2

REPORT INFORMATION
  Report Type: Spontaneous
  Country: US (occurrence: US)
  Receive Date: 20171220
  Receipt Date: 20180507
  Transmission Date: 20180711
  Serious: No
  Sender: FDA-Public Use
  Company Number: US-PFIZER INC-2017538046

PATIENT
  Age: 36 Year
  Sex: Female
  Weight: 58.96 kg

DRUGS (8)
  1. DOCETAXEL. [Suspect]
     Active Substance: DOCETAXEL
     Indication: LEUKAEMIA
     Dosage: UNK
     Dates: start: 2006, end: 2007
  2. DOCEFREZ [Suspect]
     Active Substance: DOCETAXEL ANHYDROUS
     Indication: LYMPHOMA
  3. DOCETAXEL. [Suspect]
     Active Substance: DOCETAXEL
     Indication: LYMPHOMA
  4. DOCETAXEL. [Suspect]
     Active Substance: DOCETAXEL
     Indication: LYMPHOMA
  5. TAXOTERE [Suspect]
     Active Substance: DOCETAXEL
     Indication: LYMPHOMA
  6. DOCETAXEL. [Suspect]
     Active Substance: DOCETAXEL
     Indication: LEUKAEMIA
     Dosage: UNK
     Dates: start: 2006, end: 2007
  7. TAXOTERE [Suspect]
     Active Substance: DOCETAXEL
     Indication: LEUKAEMIA
     Dosage: UNK
     Dates: start: 2006, end: 2007
  8. DOCEFREZ [Suspect]
     Active Substance: DOCETAXEL ANHYDROUS
     Indication: LEUKAEMIA
     Dosage: UNK
     Dates: start: 2006, end: 2007

REACTIONS (2)
  - Hair colour changes [Not Recovered/Not Resolved]
  - Alopecia [Not Recovered/Not Resolved]
